FAERS Safety Report 7424520-0 (Version None)
Quarter: 2011Q2

REPORT INFORMATION
  Report Type: 
  Country: None (occurrence: None)
  Receive Date: 20110419
  Receipt Date: 20110406
  Transmission Date: 20111010
  Serious: Yes (Life-Threatening, Other)
  Sender: FDA-Public Use
  Company Number: CA-JNJFOC-20110403915

PATIENT
  Sex: Female
  Weight: 80 kg

DRUGS (4)
  1. VITAMIN TAB [Concomitant]
  2. REMICADE [Suspect]
     Indication: CROHN'S DISEASE
     Route: 042
  3. IMODIUM [Concomitant]
     Dosage: DOSE: 8 TABLETS A DAY
  4. REMICADE [Suspect]
     Route: 042

REACTIONS (6)
  - FLUSHING [None]
  - DYSPNOEA [None]
  - BACK PAIN [None]
  - PAIN [None]
  - MUSCLE SPASMS [None]
  - INFUSION RELATED REACTION [None]
